FAERS Safety Report 8802963 (Version 2)
Quarter: 2012Q4

REPORT INFORMATION
  Report Type: Report from Study
  Country: US (occurrence: US)
  Receive Date: 20120924
  Receipt Date: 20121010
  Transmission Date: 20130627
  Serious: Yes (Hospitalization)
  Sender: FDA-Public Use
  Company Number: US-VERTEX PHARMACEUTICAL INC.-2012-021478

PATIENT
  Sex: Female
  Weight: 63 kg

DRUGS (7)
  1. VX-950 [Suspect]
     Indication: HEPATITIS C
     Dosage: 750 mg, tid
     Route: 048
     Dates: start: 20120623, end: 20120716
  2. PEGASYS [Concomitant]
     Indication: HEPATITIS C
     Dosage: 135 ?g, weekly
     Route: 058
     Dates: start: 20120623, end: 20120716
  3. RIBASPHERE [Concomitant]
     Indication: HEPATITIS C
     Dosage: 1000 mg, qd
     Route: 048
     Dates: start: 20120623, end: 20120716
  4. OMEPRAZOLE [Concomitant]
     Dosage: 20 mg, qd
     Dates: start: 20121116
  5. OXYCODONE-ACETAMINPHEN [Concomitant]
     Dosage: UNK
     Route: 048
     Dates: start: 20120705
  6. SELEGILINE HCL [Concomitant]
     Dosage: 5 mg, qd
     Dates: start: 20121116
  7. VALIUM                             /00017001/ [Concomitant]
     Dosage: 10 mg, qd
     Dates: start: 20101116

REACTIONS (3)
  - Oesophageal varices haemorrhage [Unknown]
  - Portal hypertension [Unknown]
  - Haematemesis [Unknown]
